FAERS Safety Report 8335133-0 (Version None)
Quarter: 2012Q2

REPORT INFORMATION
  Report Type: 
  Country: None (occurrence: None)
  Receive Date: 20120503
  Receipt Date: 20100524
  Transmission Date: 20120825
  Serious: No
  Sender: FDA-Public Use
  Company Number: US-TEVA-2010002891

PATIENT
  Sex: Male

DRUGS (5)
  1. GAPEPENTIN [Concomitant]
  2. DOXAZOSIN MESYLATE [Concomitant]
  3. LEVOTHYROXINE SODIUM [Concomitant]
  4. NUVIGIL [Suspect]
     Indication: FATIGUE
     Route: 048
     Dates: start: 20090101
  5. AMLODIPINE/BENACEPRIL [Concomitant]

REACTIONS (1)
  - ALOPECIA [None]
